FAERS Safety Report 17861257 (Version 1)
Quarter: 2020Q2

REPORT INFORMATION
  Report Type: Spontaneous
  Country: US (occurrence: US)
  Receive Date: 20200604
  Receipt Date: 20200604
  Transmission Date: 20200714
  Serious: No
  Sender: FDA-Public Use
  Company Number: US-HARMONY BIOSCIENCES-2020HMY00148

PATIENT
  Age: 36 Year
  Sex: Female
  Weight: 70.3 kg

DRUGS (2)
  1. WAKIX [Suspect]
     Active Substance: PITOLISANT HYDROCHLORIDE
     Indication: NARCOLEPSY
     Dosage: ^SMALLER DOSE OF THE TITRATION^
     Route: 048
     Dates: start: 202001, end: 2020
  2. WAKIX [Suspect]
     Active Substance: PITOLISANT HYDROCHLORIDE
     Dosage: 17.8 MG, 1X/DAY
     Route: 048
     Dates: start: 2020

REACTIONS (4)
  - Sinus disorder [Recovered/Resolved]
  - Seasonal allergy [Recovered/Resolved]
  - Product dose omission [Recovered/Resolved]
  - Malaise [Recovered/Resolved]

NARRATIVE: CASE EVENT DATE: 202002
